FAERS Safety Report 7936061-2 (Version None)
Quarter: 2011Q4

REPORT INFORMATION
  Report Type: 
  Country: None (occurrence: None)
  Receive Date: 20111123
  Receipt Date: 20111117
  Transmission Date: 20120403
  Serious: Yes (Hospitalization)
  Sender: FDA-Public Use
  Company Number: CA-ABBOTT-11P-028-0875630-00

PATIENT
  Sex: Female

DRUGS (1)
  1. HUMIRA [Suspect]
     Indication: PSORIASIS
     Dates: start: 20090525

REACTIONS (4)
  - HOSPITALISATION [None]
  - RENAL DISORDER [None]
  - GASTROINTESTINAL DISORDER [None]
  - GASTRIC DISORDER [None]
